FAERS Safety Report 16964701 (Version 1)
Quarter: 2019Q4

REPORT INFORMATION
  Report Type: Report from Study
  Country: CA (occurrence: CA)
  Receive Date: 20191028
  Receipt Date: 20191028
  Transmission Date: 20200122
  Serious: Yes (Other)
  Sender: FDA-Public Use
  Company Number: CA-ORION CORPORATION ORION PHARMA-TREX2019-4731

PATIENT
  Age: 67 Year
  Sex: Female

DRUGS (7)
  1. ESBRIET [Suspect]
     Active Substance: PIRFENIDONE
     Route: 048
  2. ESBRIET [Suspect]
     Active Substance: PIRFENIDONE
     Route: 048
  3. MYCOPHENOLATE MOFETIL. [Concomitant]
     Active Substance: MYCOPHENOLATE MOFETIL
     Route: 065
  4. ATENOLOL. [Concomitant]
     Active Substance: ATENOLOL
     Route: 065
  5. METHOTREXATE (TRADE NAME UNKNOWN) [Suspect]
     Active Substance: METHOTREXATE
     Indication: PRODUCT USED FOR UNKNOWN INDICATION
     Route: 065
  6. ESBRIET [Suspect]
     Active Substance: PIRFENIDONE
     Indication: IDIOPATHIC PULMONARY FIBROSIS
     Route: 048
  7. RABEPRAZOLE [Concomitant]
     Active Substance: RABEPRAZOLE
     Route: 065

REACTIONS (15)
  - Abdominal discomfort [Unknown]
  - Idiopathic interstitial pneumonia [Unknown]
  - Rheumatoid arthritis [Unknown]
  - Rheumatoid nodule [Unknown]
  - Traumatic lung injury [Unknown]
  - Forced vital capacity decreased [Unknown]
  - Immunosuppression [Unknown]
  - Clubbing [Unknown]
  - Gastrooesophageal reflux disease [Unknown]
  - Left atrial dilatation [Unknown]
  - Crepitations [Unknown]
  - Limb mass [Unknown]
  - Hypertension [Unknown]
  - Emphysema [Unknown]
  - Oxygen saturation decreased [Unknown]
